FAERS Safety Report 23142008 (Version 1)
Quarter: 2023Q4

REPORT INFORMATION
  Report Type: Report from Study
  Country: US (occurrence: None)
  Receive Date: 20231103
  Receipt Date: 20231103
  Transmission Date: 20240110
  Serious: Yes (Other)
  Sender: FDA-Public Use
  Company Number: 2023A246262

PATIENT
  Sex: Female

DRUGS (21)
  1. FASENRA [Suspect]
     Active Substance: BENRALIZUMAB
     Indication: Asthma
     Route: 058
  2. MONTELUKAST SODIUM [Concomitant]
     Active Substance: MONTELUKAST SODIUM
  3. TRIAMCINOLONE ACETONIDE [Concomitant]
     Active Substance: TRIAMCINOLONE ACETONIDE
  4. VITAMIN C [Concomitant]
     Active Substance: ASCORBIC ACID
  5. VITAMIN D3 [Concomitant]
     Active Substance: CHOLECALCIFEROL
  6. ACYCLOVIR [Concomitant]
     Active Substance: ACYCLOVIR
  7. DELSYM [Concomitant]
     Active Substance: DEXTROMETHORPHAN
  8. CALCIUM GLUCONATE [Concomitant]
     Active Substance: CALCIUM GLUCONATE
  9. FISH OIL [Concomitant]
     Active Substance: FISH OIL
  10. ECK LORATADINE [Concomitant]
  11. MELATONIN [Concomitant]
     Active Substance: MELATONIN
  12. ALLERGY EYE DROPS [Concomitant]
     Active Substance: NAPHAZOLINE HYDROCHLORIDE\PHENIRAMINE MALEATE
  13. NOVOCAIN [Concomitant]
     Active Substance: PROCAINE HYDROCHLORIDE
  14. MAGNESIUM SULFATE [Concomitant]
     Active Substance: MAGNESIUM SULFATE\MAGNESIUM SULFATE HEPTAHYDRATE
  15. LEVOTHYROXINE SODIUM [Concomitant]
     Active Substance: LEVOTHYROXINE SODIUM
  16. QUVIVIQ [Concomitant]
     Active Substance: DARIDOREXANT
  17. LIDOCAINE [Concomitant]
     Active Substance: LIDOCAINE
  18. LEVAQUIN [Concomitant]
     Active Substance: LEVOFLOXACIN
  19. XOPENEX HFA [Concomitant]
     Active Substance: LEVALBUTEROL TARTRATE
  20. FLUTICASONE PROPIONATE [Concomitant]
     Active Substance: FLUTICASONE PROPIONATE
  21. PROBIOTICS NOS [Concomitant]
     Active Substance: PROBIOTICS NOS

REACTIONS (5)
  - Pulmonary oedema [Recovered/Resolved]
  - Asthma [Unknown]
  - Cough [Not Recovered/Not Resolved]
  - Urticaria [Unknown]
  - Inappropriate schedule of product administration [Unknown]
